FAERS Safety Report 18955238 (Version 1)
Quarter: 2021Q1

REPORT INFORMATION
  Report Type: Report from Study
  Country: CA (occurrence: CA)
  Receive Date: 20210301
  Receipt Date: 20210301
  Transmission Date: 20210420
  Serious: Yes (Other)
  Sender: FDA-Public Use
  Company Number: CA-SHIRE-CA202022924

PATIENT

DRUGS (10)
  1. C1 INHIBITOR (HUMAN) [Suspect]
     Active Substance: HUMAN C1-ESTERASE INHIBITOR
     Indication: HEREDITARY ANGIOEDEMA
     Dosage: 1000 MILLIGRAM, EVERY 3 DAYS (PATIENT TAKES 1500MG TWICE A WEEK ? WEDNESDAY AND SUNDAY)
     Route: 065
     Dates: start: 20200705
  2. C1 INHIBITOR (HUMAN) [Suspect]
     Active Substance: HUMAN C1-ESTERASE INHIBITOR
     Indication: ACQUIRED C1 INHIBITOR DEFICIENCY
     Dosage: 1000 MILLIGRAM, EVERY 3 DAYS (PATIENT TAKES 1500MG TWICE A WEEK ? WEDNESDAY AND SUNDAY)
     Route: 065
     Dates: start: 20200705
  3. HAEGARDA [Concomitant]
     Active Substance: HUMAN C1-ESTERASE INHIBITOR
     Indication: PRODUCT USED FOR UNKNOWN INDICATION
  4. C1 INHIBITOR (HUMAN) [Suspect]
     Active Substance: HUMAN C1-ESTERASE INHIBITOR
     Indication: HEREDITARY ANGIOEDEMA
     Dosage: 1000 MILLIGRAM, EVERY 3 DAYS (PATIENT TAKES 1500MG TWICE A WEEK ? WEDNESDAY AND SUNDAY)
     Route: 065
     Dates: start: 20200705
  5. C1 INHIBITOR (HUMAN) [Suspect]
     Active Substance: HUMAN C1-ESTERASE INHIBITOR
     Indication: ACQUIRED C1 INHIBITOR DEFICIENCY
     Dosage: 1000 MILLIGRAM, EVERY 3 DAYS (PATIENT TAKES 1500MG TWICE A WEEK ? WEDNESDAY AND SUNDAY)
     Route: 065
     Dates: start: 20200705
  6. BERINERT [Concomitant]
     Active Substance: HUMAN C1-ESTERASE INHIBITOR
     Indication: PRODUCT USED FOR UNKNOWN INDICATION
  7. FIRAZYR [Suspect]
     Active Substance: ICATIBANT ACETATE
     Indication: PRODUCT USED FOR UNKNOWN INDICATION
     Dosage: UNK
     Route: 065
  8. FIRAZYR [Suspect]
     Active Substance: ICATIBANT ACETATE
     Indication: PRODUCT USED FOR UNKNOWN INDICATION
     Dosage: UNK
     Route: 065
  9. C1 INHIBITOR (HUMAN) [Suspect]
     Active Substance: HUMAN C1-ESTERASE INHIBITOR
     Indication: HEREDITARY ANGIOEDEMA
     Dosage: 1000 MILLIGRAM, EVERY 3 DAYS (PATIENT TAKES 1500MG TWICE A WEEK ? WEDNESDAY AND SUNDAY)
     Route: 065
     Dates: start: 20200705
  10. C1 INHIBITOR (HUMAN) [Suspect]
     Active Substance: HUMAN C1-ESTERASE INHIBITOR
     Indication: ACQUIRED C1 INHIBITOR DEFICIENCY
     Dosage: 1000 MILLIGRAM, EVERY 3 DAYS (PATIENT TAKES 1500MG TWICE A WEEK ? WEDNESDAY AND SUNDAY)
     Route: 065
     Dates: start: 20200705

REACTIONS (7)
  - Product dose omission issue [Unknown]
  - Hereditary angioedema [Unknown]
  - Prescribed overdose [Unknown]
  - Intentional product use issue [Unknown]
  - Leukaemia [Unknown]
  - Non-Hodgkin^s lymphoma [Not Recovered/Not Resolved]
  - Furuncle [Unknown]

NARRATIVE: CASE EVENT DATE: 20200705
